FAERS Safety Report 4297305-4 (Version None)
Quarter: 2004Q1

REPORT INFORMATION
  Report Type: 
  Country: None (occurrence: None)
  Receive Date: 20040212
  Receipt Date: 20030310
  Transmission Date: 20041129
  Serious: Yes (Other)
  Sender: FDA-Public Use
  Company Number: A03200300512

PATIENT
  Age: 39 Year
  Sex: Male

DRUGS (1)
  1. AMBIEN [Suspect]
     Indication: INSOMNIA
     Dosage: 70 MG ONCE - ORAL
     Route: 048
     Dates: start: 20030101

REACTIONS (2)
  - HALLUCINATION [None]
  - INTENTIONAL OVERDOSE [None]
